FAERS Safety Report 7904650-7 (Version None)
Quarter: 2011Q4

REPORT INFORMATION
  Report Type: 
  Country: None (occurrence: None)
  Receive Date: 20111109
  Receipt Date: 20111028
  Transmission Date: 20120403
  Serious: Yes (Hospitalization, Congenital Anomaly)
  Sender: FDA-Public Use
  Company Number: US-GLAXOSMITHKLINE-A0950548A

PATIENT
  Sex: Male

DRUGS (1)
  1. PAXIL [Suspect]
     Indication: PRODUCT USED FOR UNKNOWN INDICATION
     Route: 064

REACTIONS (8)
  - GASTROOESOPHAGEAL REFLUX DISEASE [None]
  - FOETAL EXPOSURE DURING PREGNANCY [None]
  - FALLOT'S TETRALOGY [None]
  - VENA CAVA THROMBOSIS [None]
  - CONGENITAL CARDIOVASCULAR ANOMALY [None]
  - STRABISMUS [None]
  - CONGENITAL HYDROCEPHALUS [None]
  - BRONCHOPULMONARY DYSPLASIA [None]
